FAERS Safety Report 23384485 (Version 10)
Quarter: 2024Q2

REPORT INFORMATION
  Report Type: Spontaneous
  Country: PT (occurrence: PT)
  Receive Date: 20240109
  Receipt Date: 20240514
  Transmission Date: 20240716
  Serious: Yes (Hospitalization, Other)
  Sender: FDA-Public Use
  Company Number: PT-BALDACCIPT-2023117

PATIENT
  Age: 60 Year
  Sex: Male

DRUGS (10)
  1. METHOTREXATE [Suspect]
     Active Substance: METHOTREXATE
     Indication: Rhabdomyolysis
     Dosage: 10 MILLIGRAM, QW (10 MG/WEEK)
     Route: 065
  2. METHOTREXATE [Suspect]
     Active Substance: METHOTREXATE
     Indication: Autoimmune myositis
  3. ATORVASTATIN [Suspect]
     Active Substance: ATORVASTATIN
     Indication: Hypercholesterolaemia
     Dosage: 20 MILLIGRAM, QD
     Route: 065
     Dates: start: 2019, end: 202101
  4. ATORVASTATIN [Suspect]
     Active Substance: ATORVASTATIN
     Dosage: 20 MILLIGRAM, QD
     Route: 065
     Dates: start: 202102, end: 202105
  5. ATORVASTATIN [Suspect]
     Active Substance: ATORVASTATIN
     Dosage: 10 MILLIGRAM, QD
     Route: 065
     Dates: start: 202105, end: 202108
  6. METHYLPREDNISOLONE [Suspect]
     Active Substance: METHYLPREDNISOLONE
     Indication: Rhabdomyolysis
     Dosage: 125 MILLIGRAM (BOLUS)
     Route: 065
  7. METFORMIN [Concomitant]
     Active Substance: METFORMIN HYDROCHLORIDE
     Indication: Metabolic syndrome
     Dosage: 850 MILLIGRAM, QD
     Route: 065
  8. DEXAMETHASONE [Concomitant]
     Active Substance: DEXAMETHASONE
     Indication: Product used for unknown indication
     Dosage: UNK
     Route: 065
  9. CEFTRIAXONE [Concomitant]
     Active Substance: CEFTRIAXONE\CEFTRIAXONE SODIUM
     Indication: Antibiotic prophylaxis
     Dosage: UNK
     Route: 065
  10. CEFTRIAXONE [Concomitant]
     Active Substance: CEFTRIAXONE\CEFTRIAXONE SODIUM
     Indication: Superinfection mycobacterial

REACTIONS (6)
  - Immune-mediated myositis [Recovering/Resolving]
  - Autoimmune myositis [Recovering/Resolving]
  - Rhabdomyolysis [Recovering/Resolving]
  - Myalgia [Recovering/Resolving]
  - Hepatotoxicity [Unknown]
  - Off label use [Unknown]

NARRATIVE: CASE EVENT DATE: 20210101
